FAERS Safety Report 5710101-3 (Version None)
Quarter: 2008Q2

REPORT INFORMATION
  Report Type: 
  Country: None (occurrence: None)
  Receive Date: 20080418
  Receipt Date: 20071108
  Transmission Date: 20081010
  Serious: No
  Sender: FDA-Public Use
  Company Number: US-ASTRAZENECA-2007UW25957

PATIENT
  Sex: Female

DRUGS (1)
  1. TOPROL-XL [Suspect]
     Indication: HYPERTENSION
     Route: 048
     Dates: start: 20040501

REACTIONS (5)
  - ALOPECIA [None]
  - BLOOD PRESSURE INADEQUATELY CONTROLLED [None]
  - NASAL DISORDER [None]
  - PHARYNGOLARYNGEAL PAIN [None]
  - POLLAKIURIA [None]
